FAERS Safety Report 22352480 (Version 3)
Quarter: 2023Q2

REPORT INFORMATION
  Report Type: Report from Study
  Country: None (occurrence: CN)
  Receive Date: 20230522
  Receipt Date: 20230608
  Transmission Date: 20230722
  Serious: Yes (Death, Life-Threatening, Hospitalization)
  Sender: FDA-Public Use
  Company Number: CN-Jiangsu Hengrui Medicine Co., Ltd.-2141865

PATIENT
  Age: 61 Year
  Sex: Male
  Weight: 71 kg

DRUGS (3)
  1. OXALIPLATIN [Suspect]
     Active Substance: OXALIPLATIN
     Indication: Gastric cancer
     Route: 041
     Dates: start: 20230328, end: 20230511
  2. RETLIRAFUSP ALFA [Suspect]
     Active Substance: RETLIRAFUSP ALFA
     Route: 041
     Dates: start: 20230328, end: 20230511
  3. GIMERACIL\OTERACIL\TEGAFUR [Suspect]
     Active Substance: GIMERACIL\OTERACIL\OTERACIL POTASSIUM\TEGAFUR
     Route: 048
     Dates: start: 20230328

REACTIONS (2)
  - Acute myocardial infarction [Fatal]
  - Diarrhoea [Recovered/Resolved]

NARRATIVE: CASE EVENT DATE: 20230515
